FAERS Safety Report 8205412-6 (Version None)
Quarter: 2012Q1

REPORT INFORMATION
  Report Type: 
  Country: None (occurrence: None)
  Receive Date: 20120313
  Receipt Date: 20120308
  Transmission Date: 20120608
  Serious: Yes (Hospitalization, Other)
  Sender: FDA-Public Use
  Company Number: US-MERCK-1105USA00585

PATIENT
  Age: 75 Year
  Sex: Female
  Weight: 56 kg

DRUGS (9)
  1. ALENDRONATE SODIUM [Suspect]
     Indication: OSTEOPOROSIS
     Route: 048
     Dates: start: 20090121, end: 20090801
  2. FOSAMAX [Suspect]
     Route: 048
  3. LIPITOR [Concomitant]
     Indication: BLOOD CHOLESTEROL INCREASED
     Route: 065
  4. FOSAMAX [Suspect]
     Indication: OSTEOPOROSIS
     Route: 048
     Dates: start: 19960101, end: 20101201
  5. VITAMIN D (UNSPECIFIED) [Concomitant]
     Route: 065
  6. [THERAPY UNSPECIFIED] [Concomitant]
     Route: 065
  7. FOLIC ACID [Concomitant]
     Route: 065
     Dates: start: 20090708, end: 20101001
  8. CALCIUM (UNSPECIFIED) [Concomitant]
     Route: 065
  9. ALENDRONATE SODIUM [Suspect]
     Route: 048
     Dates: start: 20091026, end: 20101001

REACTIONS (42)
  - CHRONIC OBSTRUCTIVE PULMONARY DISEASE [None]
  - HYPOKALAEMIA [None]
  - DRUG HYPERSENSITIVITY [None]
  - LABILE HYPERTENSION [None]
  - FIBROMYALGIA [None]
  - SPINAL COLUMN STENOSIS [None]
  - HYPERTONIC BLADDER [None]
  - OSTEOPOROSIS [None]
  - GASTROENTERITIS [None]
  - MUSCLE SPASMS [None]
  - GINGIVAL DISORDER [None]
  - ATROPHIC VULVOVAGINITIS [None]
  - CERUMEN IMPACTION [None]
  - ROTATOR CUFF SYNDROME [None]
  - HIATUS HERNIA [None]
  - BURSITIS [None]
  - CATARACT [None]
  - CARDIOVASCULAR DISORDER [None]
  - CAROTID ARTERY DISEASE [None]
  - ARTERIOSCLEROSIS CORONARY ARTERY [None]
  - RENAL CELL CARCINOMA [None]
  - BENIGN NEOPLASM OF THYROID GLAND [None]
  - GAIT DISTURBANCE [None]
  - TOOTH DISORDER [None]
  - OSTEOPENIA [None]
  - CARDIAC DISORDER [None]
  - PYREXIA [None]
  - FALL [None]
  - ORAL DISORDER [None]
  - MYOFASCIAL PAIN SYNDROME [None]
  - WEIGHT INCREASED [None]
  - OSTEOARTHROPATHY [None]
  - PANCREATITIS [None]
  - HYPERLIPIDAEMIA [None]
  - OSTEOARTHRITIS [None]
  - ATRIAL FIBRILLATION [None]
  - URINARY TRACT INFECTION [None]
  - HYPERTENSION [None]
  - ARRHYTHMIA [None]
  - FEMUR FRACTURE [None]
  - RECTOCELE [None]
  - PERIPHERAL VASCULAR DISORDER [None]
